FAERS Safety Report 19714029 (Version 2)
Quarter: 2021Q3

REPORT INFORMATION
  Report Type: Spontaneous
  Country: KW (occurrence: KW)
  Receive Date: 20210818
  Receipt Date: 20210818
  Transmission Date: 20211014
  Serious: Yes (Other)
  Sender: FDA-Public Use
  Company Number: KW-SUN PHARMACEUTICAL INDUSTRIES LTD-2021RR-308278

PATIENT
  Age: 15 Year
  Sex: Female

DRUGS (1)
  1. QUETIAPINE. [Suspect]
     Active Substance: QUETIAPINE
     Indication: BIPOLAR I DISORDER
     Dosage: 600 MILLIGRAM, DAILY
     Route: 065

REACTIONS (3)
  - Idiopathic intracranial hypertension [Unknown]
  - Papilloedema [Recovered/Resolved]
  - Weight increased [Recovering/Resolving]
